FAERS Safety Report 19146769 (Version 3)
Quarter: 2021Q3

REPORT INFORMATION
  Report Type: Spontaneous
  Country: US (occurrence: US)
  Receive Date: 20210416
  Receipt Date: 20210805
  Transmission Date: 20211014
  Serious: No
  Sender: FDA-Public Use
  Company Number: US-PFIZER INC-2021313972

PATIENT
  Age: 46 Year
  Sex: Female
  Weight: 68.03 kg

DRUGS (18)
  1. ASPIRIN EC [Concomitant]
     Active Substance: ASPIRIN
     Dosage: UNK
  2. VITAMIN E [Concomitant]
     Active Substance: .ALPHA.-TOCOPHEROL
  3. EFFEXOR [Concomitant]
     Active Substance: VENLAFAXINE HYDROCHLORIDE
  4. LUPRON [Concomitant]
     Active Substance: LEUPROLIDE ACETATE
     Dosage: UNK (EVERY 3 MONTHS)
     Dates: start: 202102
  5. LETROZOLE. [Concomitant]
     Active Substance: LETROZOLE
     Indication: HER2 GENE AMPLIFICATION
     Dosage: 125 MG
     Dates: start: 202102
  6. CALCIUM CARBONATE. [Concomitant]
     Active Substance: CALCIUM CARBONATE
     Dosage: UNK
  7. FISH OIL [Concomitant]
     Active Substance: FISH OIL
     Dosage: UNK
  8. IBRANCE [Suspect]
     Active Substance: PALBOCICLIB
     Dosage: 125 MG
     Dates: start: 202102
  9. VITAMIN D3 [Concomitant]
     Active Substance: CHOLECALCIFEROL
     Dosage: UNK
  10. IBRANCE [Suspect]
     Active Substance: PALBOCICLIB
     Indication: HER2 NEGATIVE BREAST CANCER
     Dosage: 125 MG, CYCLIC (1 DAILY FOR 21 DAYS)
     Route: 048
     Dates: start: 20210103
  11. LUPRON DEPOT [Concomitant]
     Active Substance: LEUPROLIDE ACETATE
     Dosage: UNK, AS NEEDED (EVERY 3 MONTHS)
     Dates: start: 202102
  12. PREMARIN [Concomitant]
     Active Substance: ESTROGENS, CONJUGATED
     Dosage: 5 MG, AS NEEDED (FEW TIMES PER MONTH)
  13. IBRANCE [Suspect]
     Active Substance: PALBOCICLIB
     Indication: BREAST CANCER FEMALE
     Dosage: 125 MG, CYCLIC (1 DAILY FOR 21 DAYS)
     Route: 048
     Dates: start: 20210301
  14. MULTIVITAMINS [Concomitant]
     Active Substance: VITAMINS
     Dosage: UNK
  15. PROBIOTIC ACIDOPHILUS [LACTOBACILLUS ACIDOPHILUS] [Concomitant]
     Dosage: UNK
  16. VENLAFAXINE HCL [Concomitant]
     Active Substance: VENLAFAXINE HYDROCHLORIDE
     Dosage: UNK, AS NEEDED
  17. TAMOXIFEN [Concomitant]
     Active Substance: TAMOXIFEN
     Dosage: UNK
     Dates: start: 2012, end: 202012
  18. CALCIUM WITH D3 [Concomitant]
     Dosage: UNK

REACTIONS (4)
  - Blood lactate dehydrogenase decreased [Unknown]
  - Dry eye [Unknown]
  - White blood cell count decreased [Unknown]
  - Fatigue [Unknown]
